FAERS Safety Report 7469851-3 (Version None)
Quarter: 2011Q2

REPORT INFORMATION
  Report Type: 
  Country: None (occurrence: None)
  Receive Date: 20110510
  Receipt Date: 20110422
  Transmission Date: 20111010
  Serious: No
  Sender: FDA-Public Use
  Company Number: US-B.I. PHARMACEUTICALS,INC./RIDGEFIELD-2011-BP-11534BP

PATIENT
  Sex: Female

DRUGS (6)
  1. SYNTHROID [Concomitant]
  2. FOSAMAX [Concomitant]
     Indication: BONE DISORDER
  3. FISH OIL [Concomitant]
     Indication: PROPHYLAXIS
  4. PRADAXA [Suspect]
     Indication: ANTICOAGULANT THERAPY
     Dosage: 300 MG
     Route: 048
     Dates: start: 20110404
  5. ATENOLOL [Concomitant]
     Indication: HYPERTENSION
  6. NORVASC [Concomitant]
     Indication: HYPERTENSION

REACTIONS (4)
  - DYSPEPSIA [None]
  - OESOPHAGEAL SPASM [None]
  - DIZZINESS [None]
  - ABDOMINAL DISTENSION [None]
